FAERS Safety Report 4563657-0 (Version None)
Quarter: 2005Q1

REPORT INFORMATION
  Report Type: 
  Country: None (occurrence: None)
  Receive Date: 20050124
  Receipt Date: 20050114
  Transmission Date: 20050727
  Serious: Yes (Hospitalization)
  Sender: FDA-Public Use
  Company Number: 2004-07-1445

PATIENT
  Age: 44 Year
  Sex: Male

DRUGS (8)
  1. REBETOL [Suspect]
     Indication: HEPATITIS C
     Dosage: 400 MG ORAL
     Route: 048
     Dates: start: 20040115, end: 20040628
  2. INTRON A [Suspect]
     Indication: HEPATITIS C
     Dosage: 6 MIU TIW INTRAMUSCULAR
     Route: 030
     Dates: start: 20040115, end: 20040628
  3. ZERIT [Concomitant]
  4. EPIVIR [Concomitant]
  5. GASTER [Concomitant]
  6. STOCRIN (EFAVIRENZ) [Concomitant]
  7. PRAVASTATIN [Concomitant]
  8. DAONIL TABLETS [Concomitant]

REACTIONS (2)
  - OESOPHAGEAL ULCER [None]
  - OESOPHAGEAL VARICES HAEMORRHAGE [None]
